FAERS Safety Report 13783061 (Version 2)
Quarter: 2017Q3

REPORT INFORMATION
  Report Type: Spontaneous
  Country: US (occurrence: US)
  Receive Date: 20170724
  Receipt Date: 20170727
  Transmission Date: 20171127
  Serious: Yes (Death)
  Sender: FDA-Public Use
  Company Number: US-ASTELLAS-2017US024719

PATIENT
  Sex: Male

DRUGS (2)
  1. CRESEMBA [Suspect]
     Active Substance: ISAVUCONAZONIUM SULFATE
     Indication: ASPERGILLUS INFECTION
  2. CRESEMBA [Suspect]
     Active Substance: ISAVUCONAZONIUM SULFATE
     Indication: LYMPHOCYTIC LEUKAEMIA
     Dosage: 372 MG (2 CAPSULES), ONCE DAILY
     Route: 048
     Dates: start: 201706, end: 201707

REACTIONS (2)
  - Death [Fatal]
  - Off label use [Unknown]
